FAERS Safety Report 5066713-6 (Version None)
Quarter: 2006Q3

REPORT INFORMATION
  Report Type: 
  Country: None (occurrence: None)
  Receive Date: 20060801
  Receipt Date: 20060727
  Transmission Date: 20061208
  Serious: Yes (Hospitalization)
  Sender: FDA-Public Use
  Company Number: 456028

PATIENT
  Age: 76 Year
  Sex: Female

DRUGS (6)
  1. ARTIST [Suspect]
     Indication: ANGINA PECTORIS
     Route: 048
  2. FLECAINIDE ACETATE [Suspect]
     Indication: VENTRICULAR TACHYCARDIA
     Dosage: 50MG THREE TIMES PER DAY
     Route: 048
  3. HERBESSER [Suspect]
     Indication: VENTRICULAR TACHYCARDIA
     Dosage: 100MG PER DAY
     Route: 048
  4. AMLODIN [Concomitant]
     Indication: HYPERTENSION
  5. ACARBOSE [Concomitant]
     Indication: DIABETES MELLITUS
  6. EUGLUCON [Concomitant]
     Indication: DIABETES MELLITUS

REACTIONS (5)
  - BLOOD PRESSURE DECREASED [None]
  - BRADYCARDIA [None]
  - LOSS OF CONSCIOUSNESS [None]
  - PYREXIA [None]
  - SHOCK [None]
